FAERS Safety Report 11753311 (Version 2)
Quarter: 2016Q2

REPORT INFORMATION
  Report Type: Spontaneous
  Country: VE (occurrence: VE)
  Receive Date: 20151119
  Receipt Date: 20160531
  Transmission Date: 20160815
  Serious: Yes (Hospitalization)
  Sender: FDA-Public Use
  Company Number: PHHY2015VE151226

PATIENT
  Sex: Male

DRUGS (7)
  1. UROCIT [Concomitant]
     Indication: PROSTATIC DISORDER
     Dosage: 10 MG, QD
     Route: 065
     Dates: start: 201511
  2. GLUCOFAGE [Concomitant]
     Indication: DIABETES MELLITUS
     Dosage: 850 MG, BID
     Route: 065
  3. SINEMET [Concomitant]
     Active Substance: CARBIDOPA\LEVODOPA
     Indication: PARKINSON^S DISEASE
     Route: 065
  4. STALEVO [Suspect]
     Active Substance: CARBIDOPA\ENTACAPONE\LEVODOPA
     Indication: PARKINSON^S DISEASE
     Dosage: 300 MG, QD
     Route: 048
     Dates: start: 2011
  5. STALEVO [Suspect]
     Active Substance: CARBIDOPA\ENTACAPONE\LEVODOPA
     Dosage: 200 MG, BID
     Route: 048
     Dates: start: 2013
  6. NORVASC [Concomitant]
     Active Substance: AMLODIPINE BESYLATE
     Indication: TENSION
     Dosage: 5 MG, QD
     Route: 065
  7. STALEVO [Suspect]
     Active Substance: CARBIDOPA\ENTACAPONE\LEVODOPA
     Dosage: 150 MG, QD (50 MG PRESENTATION)
     Route: 048
     Dates: start: 201511

REACTIONS (9)
  - Asthenia [Not Recovered/Not Resolved]
  - Malaise [Not Recovered/Not Resolved]
  - Staring [Not Recovered/Not Resolved]
  - Insomnia [Not Recovered/Not Resolved]
  - Nephrolithiasis [Unknown]
  - Hallucination, visual [Not Recovered/Not Resolved]
  - Musculoskeletal stiffness [Unknown]
  - Abasia [Not Recovered/Not Resolved]
  - Tremor [Not Recovered/Not Resolved]
